FAERS Safety Report 16925471 (Version 1)
Quarter: 2019Q4

REPORT INFORMATION
  Report Type: Spontaneous
  Country: US (occurrence: US)
  Receive Date: 20191016
  Receipt Date: 20191016
  Transmission Date: 20200122
  Serious: No
  Sender: FDA-Public Use
  Company Number: US-ASTRAZENECA-2019SF32881

PATIENT
  Age: 80 Year
  Sex: Male
  Weight: 81.2 kg

DRUGS (1)
  1. BYDUREON BCISE [Suspect]
     Active Substance: EXENATIDE
     Indication: TYPE 2 DIABETES MELLITUS
     Route: 058
     Dates: start: 2018

REACTIONS (5)
  - Device issue [Unknown]
  - Injection site nodule [Unknown]
  - Needle issue [Unknown]
  - Incorrect dose administered [Unknown]
  - Product preparation issue [Unknown]

NARRATIVE: CASE EVENT DATE: 2018
